FAERS Safety Report 11522875 (Version 1)
Quarter: 2015Q3

REPORT INFORMATION
  Report Type: Report from Study
  Country: US (occurrence: US)
  Receive Date: 20150918
  Receipt Date: 20150918
  Transmission Date: 20151125
  Serious: Yes (Other)
  Sender: FDA-Public Use
  Company Number: US-GILEAD-2015-0172603

PATIENT
  Age: 71 Year
  Sex: Male

DRUGS (2)
  1. ADCIRCA [Concomitant]
     Active Substance: TADALAFIL
  2. AMBRISENTAN [Suspect]
     Active Substance: AMBRISENTAN
     Indication: PRODUCT USED FOR UNKNOWN INDICATION
     Dosage: 10 MG, QD
     Route: 065
     Dates: start: 20150428

REACTIONS (7)
  - Vomiting [Unknown]
  - Lung carcinoma cell type unspecified stage IV [Unknown]
  - Infrequent bowel movements [Unknown]
  - Urinary incontinence [Unknown]
  - Muscle spasms [Unknown]
  - Back pain [Unknown]
  - Loss of consciousness [Unknown]
